FAERS Safety Report 13613954 (Version 5)
Quarter: 2017Q3

REPORT INFORMATION
  Report Type: Spontaneous
  Country: US (occurrence: US)
  Receive Date: 20170606
  Receipt Date: 20170919
  Transmission Date: 20171127
  Serious: Yes (Other)
  Sender: FDA-Public Use
  Company Number: US-JNJCP-30000385670

PATIENT
  Age: 59 Year
  Sex: Female

DRUGS (1)
  1. NEUTROGENA AGE SHIELD FACE SPF 70 [Suspect]
     Active Substance: AVOBENZONE\HOMOSALATE\OCTISALATE\OCTOCRYLENE\OXYBENZONE
     Indication: PROPHYLAXIS
     Dosage: ONCE
     Route: 061
     Dates: start: 20170429, end: 20170429

REACTIONS (6)
  - Dermatitis allergic [Recovering/Resolving]
  - Hypersensitivity [Recovering/Resolving]
  - Chemical burns of eye [Recovering/Resolving]
  - Conjunctivitis allergic [Recovering/Resolving]
  - Headache [Recovering/Resolving]
  - Application site burn [Recovering/Resolving]

NARRATIVE: CASE EVENT DATE: 2017
